FAERS Safety Report 7834730-6 (Version None)
Quarter: 2011Q4

REPORT INFORMATION
  Report Type: 
  Country: None (occurrence: None)
  Receive Date: 20111024
  Receipt Date: 20111013
  Transmission Date: 20120403
  Serious: Yes (Other)
  Sender: FDA-Public Use
  Company Number: US-JNJFOC-20111006242

PATIENT
  Sex: Female

DRUGS (1)
  1. REMICADE [Suspect]
     Indication: CROHN'S DISEASE
     Route: 042

REACTIONS (5)
  - HEART RATE INCREASED [None]
  - DYSPNOEA [None]
  - HERPES ZOSTER [None]
  - INFUSION RELATED REACTION [None]
  - INFLUENZA LIKE ILLNESS [None]
